FAERS Safety Report 16797099 (Version 2)
Quarter: 2025Q2

REPORT INFORMATION
  Report Type: Spontaneous
  Country: PT (occurrence: PT)
  Receive Date: 20190911
  Receipt Date: 20250429
  Transmission Date: 20250716
  Serious: Yes (Other)
  Sender: AUROBINDO
  Company Number: PT-AUROBINDO-AUR-APL-2019-059099

PATIENT
  Sex: Female

DRUGS (18)
  1. BRIMONIDINE [Suspect]
     Active Substance: BRIMONIDINE TARTRATE
     Indication: Intraocular pressure test
     Route: 061
  2. BRIMONIDINE [Suspect]
     Active Substance: BRIMONIDINE TARTRATE
  3. LATANOPROST [Suspect]
     Active Substance: LATANOPROST
     Indication: Glaucoma
     Route: 061
     Dates: start: 2014
  4. LATANOPROST [Suspect]
     Active Substance: LATANOPROST
  5. IBUPROFEN [Suspect]
     Active Substance: IBUPROFEN
     Indication: Juvenile idiopathic arthritis
     Dosage: 30 MILLIGRAM/KILOGRAM, ONCE A DAY
     Route: 048
     Dates: start: 2010
  6. METHOTREXATE [Suspect]
     Active Substance: METHOTREXATE
     Indication: Juvenile idiopathic arthritis
     Route: 048
     Dates: start: 2011
  7. METHOTREXATE [Suspect]
     Active Substance: METHOTREXATE
     Route: 058
  8. TIMOLOL [Suspect]
     Active Substance: TIMOLOL
     Indication: Intraocular pressure increased
     Route: 061
  9. ACETAZOLAMIDE [Suspect]
     Active Substance: ACETAZOLAMIDE
     Indication: Glaucoma
     Dosage: 250 MILLIGRAM, ONCE A DAY
     Route: 048
     Dates: start: 2014
  10. BRINZOLAMIDE [Suspect]
     Active Substance: BRINZOLAMIDE
     Indication: Intraocular pressure test
     Route: 061
  11. BRINZOLAMIDE [Suspect]
     Active Substance: BRINZOLAMIDE
  12. DEFLAZACORT [Suspect]
     Active Substance: DEFLAZACORT
     Indication: Juvenile idiopathic arthritis
     Dosage: 0.5 MILLIGRAM/KILOGRAM, ONCE A DAY
     Route: 048
     Dates: start: 2011
  13. DEFLAZACORT [Suspect]
     Active Substance: DEFLAZACORT
  14. DEXAMETHASONE [Suspect]
     Active Substance: DEXAMETHASONE
     Indication: Product used for unknown indication
     Dosage: TWO TIMES A DAY, EACH, IN BOTH EYES
     Route: 061
  15. ADALIMUMAB [Suspect]
     Active Substance: ADALIMUMAB
     Indication: Juvenile idiopathic arthritis
     Route: 058
     Dates: start: 2014
  16. ADALIMUMAB [Suspect]
     Active Substance: ADALIMUMAB
     Route: 042
  17. TOCILIZUMAB [Concomitant]
     Active Substance: TOCILIZUMAB
     Indication: Product used for unknown indication
     Route: 042
  18. TOCILIZUMAB [Concomitant]
     Active Substance: TOCILIZUMAB

REACTIONS (3)
  - Cushing^s syndrome [Unknown]
  - Muscle atrophy [Unknown]
  - Short stature [Unknown]
